FAERS Safety Report 13061882 (Version 1)
Quarter: 2016Q4

REPORT INFORMATION
  Report Type: Spontaneous
  Country: US (occurrence: US)
  Receive Date: 20161226
  Receipt Date: 20161226
  Transmission Date: 20170207
  Serious: No
  Sender: FDA-Public Use
  Company Number: US-009507513-1612USA004980

PATIENT
  Age: 44 Year
  Sex: Female

DRUGS (1)
  1. NOXAFIL [Suspect]
     Active Substance: POSACONAZOLE
     Indication: ENDOPHTHALMITIS
     Dosage: 400 MG, TWICE DAILY
     Route: 048

REACTIONS (1)
  - Product use issue [Unknown]
